FAERS Safety Report 19964204 (Version 1)
Quarter: 2021Q4

REPORT INFORMATION
  Report Type: Spontaneous
  Country: SE (occurrence: SE)
  Receive Date: 20211018
  Receipt Date: 20211018
  Transmission Date: 20220304
  Serious: Yes (Death)
  Sender: FDA-Public Use
  Company Number: 2021A770979

PATIENT
  Age: 73 Year
  Sex: Male

DRUGS (5)
  1. TICAGRELOR [Suspect]
     Active Substance: TICAGRELOR
     Indication: Stent placement
     Dosage: 90 MG 1X2
     Route: 048
     Dates: start: 20210709, end: 202110
  2. ASPIRIN [Suspect]
     Active Substance: ASPIRIN
     Indication: Stent placement
     Dosage: 75 MG 75 MG X1
     Route: 048
     Dates: start: 20210706, end: 202110
  3. METOPROLOL [Concomitant]
     Active Substance: METOPROLOL
     Dosage: 100 MG 1X1
     Route: 048
     Dates: start: 20210706, end: 202110
  4. RAMIPRIL [Concomitant]
     Active Substance: RAMIPRIL
     Dosage: 10 MG 10 MGX1
     Route: 048
     Dates: start: 20210706, end: 202110
  5. ATORVASTATIN [Concomitant]
     Active Substance: ATORVASTATIN
     Dosage: 80 MG 80 MGX1
     Route: 048
     Dates: start: 20210706, end: 202110

REACTIONS (2)
  - Subdural haematoma [Fatal]
  - Haemorrhage [Fatal]

NARRATIVE: CASE EVENT DATE: 20211001
